FAERS Safety Report 22954035 (Version 2)
Quarter: 2023Q4

REPORT INFORMATION
  Report Type: Spontaneous
  Country: US (occurrence: None)
  Receive Date: 20230918
  Receipt Date: 20231023
  Transmission Date: 20240110
  Serious: No
  Sender: FDA-Public Use
  Company Number: 2023A200221

PATIENT
  Sex: Male

DRUGS (1)
  1. PULMICORT TURBUHALER [Suspect]
     Active Substance: BUDESONIDE
     Indication: Cough
     Dosage: UNDER A WEEK AND A HALF AGO, 60 INHALATIONS90.0UG UNKNOWN
     Route: 055
     Dates: start: 202308

REACTIONS (5)
  - Illness [Unknown]
  - Asthenia [Unknown]
  - Vomiting [Unknown]
  - Product dose omission issue [Unknown]
  - Device malfunction [Unknown]
